FAERS Safety Report 6964108-9 (Version None)
Quarter: 2010Q3

REPORT INFORMATION
  Report Type: 
  Country: None (occurrence: None)
  Receive Date: 20100902
  Receipt Date: 20100823
  Transmission Date: 20110219
  Serious: Yes (Death, Hospitalization)
  Sender: FDA-Public Use
  Company Number: ES-MYLANLABS-2010S1015298

PATIENT
  Age: 19 Year
  Sex: Female
  Weight: 75 kg

DRUGS (6)
  1. VENLAFAXINE [Suspect]
     Indication: INTENTIONAL OVERDOSE
     Route: 065
  2. VENLAFAXINE [Suspect]
     Dosage: SLOW-RELEASE VENLAFAXINE WAS TAKEN IN THE MORNING
     Route: 065
  3. TOPIRAMATE [Suspect]
     Indication: INTENTIONAL OVERDOSE
     Route: 065
  4. TOPIRAMATE [Suspect]
     Dosage: 200MG IN MORNING AND 100MG IN EVENING
     Route: 065
  5. QUETIAPINE [Suspect]
     Indication: INTENTIONAL OVERDOSE
     Route: 065
  6. QUETIAPINE [Suspect]
     Dosage: TAKEN IN THE EVENING
     Route: 065

REACTIONS (9)
  - BRAIN OEDEMA [None]
  - CARDIOPULMONARY FAILURE [None]
  - CONVULSION [None]
  - INTENTIONAL OVERDOSE [None]
  - METABOLIC ACIDOSIS [None]
  - NOSOCOMIAL INFECTION [None]
  - PYREXIA [None]
  - RESPIRATORY DISORDER [None]
  - RHABDOMYOLYSIS [None]
